FAERS Safety Report 17027837 (Version 4)
Quarter: 2020Q1

REPORT INFORMATION
  Report Type: Spontaneous
  Country: ES (occurrence: ES)
  Receive Date: 20191113
  Receipt Date: 20200204
  Transmission Date: 20200409
  Serious: Yes (Other)
  Sender: FDA-Public Use
  Company Number: ES-JNJFOC-20191103067

PATIENT
  Age: 36 Year
  Sex: Female

DRUGS (4)
  1. TOPAMAX [Suspect]
     Active Substance: TOPIRAMATE
     Indication: IDIOPATHIC INTRACRANIAL HYPERTENSION
     Dosage: BASELINE DOSE
     Route: 048
  2. TOPAMAX [Suspect]
     Active Substance: TOPIRAMATE
     Dosage: INCREASING UPTO
     Route: 048
  3. EPLERENONE. [Concomitant]
     Active Substance: EPLERENONE
     Indication: CHORIORETINOPATHY
     Dosage: 50 MG PER DAY
     Route: 065
  4. ACETAZOLAMIDE. [Concomitant]
     Active Substance: ACETAZOLAMIDE
     Indication: IDIOPATHIC INTRACRANIAL HYPERTENSION
     Dosage: 3 TIMES A DAY
     Route: 065

REACTIONS (4)
  - Product use in unapproved indication [Unknown]
  - Serous retinal detachment [Recovered/Resolved]
  - Macular detachment [Recovered/Resolved]
  - Off label use [Unknown]
